FAERS Safety Report 4817754-2 (Version None)
Quarter: 2005Q3

REPORT INFORMATION
  Report Type: 
  Country: None (occurrence: None)
  Receive Date: 20050929
  Receipt Date: 20050718
  Transmission Date: 20060218
  Serious: No
  Sender: FDA-Public Use
  Company Number: 05P-163-0305956-00

PATIENT
  Age: 71 Year
  Sex: Female
  Weight: 52.1637 kg

DRUGS (4)
  1. HUMIRA [Suspect]
     Indication: RHEUMATOID ARTHRITIS
     Dosage: 40 MG, 1 IN 2 WK, SUBCUTANEOUS
     Route: 058
     Dates: start: 20030401
  2. METHOTREXATE SODIUM [Concomitant]
  3. PREDNISONE [Concomitant]
  4. FOLIC ACID [Concomitant]

REACTIONS (3)
  - BACK PAIN [None]
  - RHEUMATOID ARTHRITIS [None]
  - WEIGHT INCREASED [None]
